FAERS Safety Report 7942191-1 (Version None)
Quarter: 2011Q4

REPORT INFORMATION
  Report Type: 
  Country: None (occurrence: None)
  Receive Date: 20111122
  Receipt Date: 20111114
  Transmission Date: 20120403
  Serious: Yes (Hospitalization, Other)
  Sender: FDA-Public Use
  Company Number: 2011MA016544

PATIENT
  Age: 79 Year
  Sex: Male

DRUGS (2)
  1. RAMIPRIL [Suspect]
     Indication: CARDIAC FAILURE
     Dosage: 1.25MG;PO
     Route: 048
  2. OPTIRAY 160 [Suspect]
     Indication: COMPUTERISED TOMOGRAM
     Dates: start: 20100804

REACTIONS (7)
  - INTERNATIONAL NORMALISED RATIO INCREASED [None]
  - DEHYDRATION [None]
  - URINARY RETENTION [None]
  - PLEURAL EFFUSION [None]
  - BLOOD CREATININE INCREASED [None]
  - DIALYSIS [None]
  - PNEUMONIA [None]
